FAERS Safety Report 8432644-4 (Version None)
Quarter: 2012Q2

REPORT INFORMATION
  Report Type: 
  Country: None (occurrence: None)
  Receive Date: 20120607
  Receipt Date: 20120521
  Transmission Date: 20120825
  Serious: Yes (Other)
  Sender: FDA-Public Use
  Company Number: UCM201205-000047

PATIENT

DRUGS (2)
  1. BISOPROLOL FUMARATE AND HYDROCHLOROTHIAZIDE [Suspect]
     Dosage: 2.5/6.25 MG TABLET
  2. OMEPRAZOLE [Concomitant]

REACTIONS (4)
  - VOMITING [None]
  - PRODUCT QUALITY ISSUE [None]
  - PRODUCT SUBSTITUTION ISSUE [None]
  - EXTRASYSTOLES [None]
